FAERS Safety Report 6686402-1 (Version None)
Quarter: 2010Q2

REPORT INFORMATION
  Report Type: 
  Country: None (occurrence: None)
  Receive Date: 20100414
  Receipt Date: 20090724
  Transmission Date: 20101027
  Serious: No
  Sender: FDA-Public Use
  Company Number: 2009-00429

PATIENT
  Age: 84 Year
  Sex: Female
  Weight: 54.4316 kg

DRUGS (3)
  1. ZICAM COLD REMEDY NASAL GEL [Suspect]
     Dosage: BID - COUPLE YEARS/6 MONTHS AGO
  2. DILTIAZEM HCL [Concomitant]
  3. ASPIRIN [Concomitant]

REACTIONS (1)
  - ANOSMIA [None]
